APPROVED DRUG PRODUCT: MIRABEGRON
Active Ingredient: MIRABEGRON
Strength: 25MG
Dosage Form/Route: TABLET, EXTENDED RELEASE;ORAL
Application: A218543 | Product #001 | TE Code: AB
Applicant: MSN LABORATORIES PRIVATE LTD
Approved: Nov 4, 2025 | RLD: No | RS: No | Type: RX